FAERS Safety Report 14988970 (Version 1)
Quarter: 2018Q2

REPORT INFORMATION
  Report Type: Spontaneous
  Country: AU (occurrence: AU)
  Receive Date: 20180608
  Receipt Date: 20180608
  Transmission Date: 20180711
  Serious: Yes (Other)
  Sender: FDA-Public Use
  Company Number: AU-IMPAX LABORATORIES, INC-2018-IPXL-01927

PATIENT
  Age: 24 Year
  Sex: Male

DRUGS (13)
  1. CLOZAPINE. [Interacting]
     Active Substance: CLOZAPINE
     Dosage: 700 MG, DAILY (50 MG MID DAY AND 650 MG NIGHT)
     Route: 065
  2. CLOZAPINE. [Interacting]
     Active Substance: CLOZAPINE
     Dosage: 425 MG, DAILY
     Route: 065
  3. DIVALPROEX SODIUM ER [Interacting]
     Active Substance: DIVALPROEX SODIUM
     Dosage: 1000 MG, DAILY
     Route: 065
  4. DIVALPROEX SODIUM ER [Interacting]
     Active Substance: DIVALPROEX SODIUM
     Dosage: 1500 MG, DAILY
     Route: 065
  5. DIVALPROEX SODIUM ER [Suspect]
     Active Substance: DIVALPROEX SODIUM
     Indication: CONVULSION PROPHYLAXIS
     Dosage: 1000 MG, DAILY
     Route: 065
  6. CLOZAPINE. [Interacting]
     Active Substance: CLOZAPINE
     Indication: SCHIZOPHRENIA
     Dosage: UNK
     Route: 065
  7. CLOZAPINE. [Interacting]
     Active Substance: CLOZAPINE
     Dosage: 700 MG, DAILY (50 MG MID DAY AND 650 MG NIGHT)
     Route: 065
  8. CLOZAPINE. [Interacting]
     Active Substance: CLOZAPINE
     Dosage: 650 MG, DAILY
     Route: 065
  9. CLOZAPINE. [Interacting]
     Active Substance: CLOZAPINE
     Dosage: 750 MG, DAILY (100 MG MID DAY AND 650 MG NIGHT)
     Route: 065
  10. CLOZAPINE. [Interacting]
     Active Substance: CLOZAPINE
     Dosage: 350 MG, DAILY
     Route: 065
  11. HALOPERIDOL DECANOATE. [Interacting]
     Active Substance: HALOPERIDOL DECANOATE
     Indication: SCHIZOPHRENIA
     Dosage: 200 MG ONCE EVERY 4 WEEKS, TOOK ONLY 2 DOSES
     Route: 065
  12. HALOPERIDOL DECANOATE. [Interacting]
     Active Substance: HALOPERIDOL DECANOATE
     Dosage: THREE 10 MG DOSES
     Route: 048
  13. DIVALPROEX SODIUM ER [Interacting]
     Active Substance: DIVALPROEX SODIUM
     Dosage: 2000 MG, DAILY
     Route: 065

REACTIONS (6)
  - Drug interaction [Recovered/Resolved]
  - Toxicity to various agents [Recovered/Resolved]
  - Somnolence [Recovered/Resolved]
  - Muscle contractions involuntary [Recovered/Resolved]
  - Dysarthria [Recovered/Resolved]
  - Salivary hypersecretion [Recovered/Resolved]
